FAERS Safety Report 12617336 (Version 1)
Quarter: 2016Q3

REPORT INFORMATION
  Report Type: Spontaneous
  Country: US (occurrence: US)
  Receive Date: 20160803
  Receipt Date: 20160803
  Transmission Date: 20161109
  Serious: No
  Sender: FDA-Public Use
  Company Number: US-ALARA PHARMACEUTICAL CORPORATION-1055800

PATIENT
  Age: 73 Year
  Sex: Female
  Weight: 118.18 kg

DRUGS (8)
  1. PROTONIX [Suspect]
     Active Substance: PANTOPRAZOLE SODIUM
  2. ALLOPURINOL. [Suspect]
     Active Substance: ALLOPURINOL
  3. ZYRTEC [Concomitant]
     Active Substance: CETIRIZINE HYDROCHLORIDE
  4. LEVO-T [Suspect]
     Active Substance: LEVOTHYROXINE SODIUM
     Indication: HYPOTHYROIDISM
  5. PRISTIQ EXTENDED-RELEASE [Suspect]
     Active Substance: DESVENLAFAXINE SUCCINATE
  6. VALSARTAN. [Suspect]
     Active Substance: VALSARTAN
  7. TYLENOL [Concomitant]
     Active Substance: ACETAMINOPHEN
  8. MELATONIN [Concomitant]
     Active Substance: MELATONIN

REACTIONS (5)
  - Abdominal pain [Unknown]
  - Abdominal discomfort [Unknown]
  - Nightmare [Unknown]
  - Sleep disorder [Unknown]
  - Nausea [Unknown]
